FAERS Safety Report 18980257 (Version 1)
Quarter: 2021Q1

REPORT INFORMATION
  Report Type: Report from Study
  Country: US (occurrence: US)
  Receive Date: 20210308
  Receipt Date: 20210308
  Transmission Date: 20210420
  Serious: No
  Sender: FDA-Public Use
  Company Number: US-HRARD-2020000957

PATIENT
  Age: 54 Year
  Sex: Female

DRUGS (6)
  1. CRESTOR [Concomitant]
     Active Substance: ROSUVASTATIN CALCIUM
     Indication: PRODUCT USED FOR UNKNOWN INDICATION
  2. METOPIRONE [Suspect]
     Active Substance: METYRAPONE
     Indication: CUSHING^S SYNDROME
     Dosage: ^AS DIRECTED, EVERY 06 HOURS^
     Route: 048
     Dates: start: 20201030
  3. POTASSIUM [Concomitant]
     Active Substance: POTASSIUM
     Indication: PRODUCT USED FOR UNKNOWN INDICATION
  4. ZOFRAN [Concomitant]
     Active Substance: ONDANSETRON HYDROCHLORIDE
     Indication: PRODUCT USED FOR UNKNOWN INDICATION
  5. LYSODREN [Concomitant]
     Active Substance: MITOTANE
     Indication: CUSHING^S SYNDROME
     Dosage: ^1500 MG BID AND INCREASED AS DIRECTED^
     Route: 048
     Dates: start: 20201104
  6. LISINOPRIL. [Concomitant]
     Active Substance: LISINOPRIL
     Indication: PRODUCT USED FOR UNKNOWN INDICATION

REACTIONS (1)
  - Off label use [Not Recovered/Not Resolved]

NARRATIVE: CASE EVENT DATE: 20201030
